FAERS Safety Report 7010952-1 (Version None)
Quarter: 2010Q3

REPORT INFORMATION
  Report Type: 
  Country: None (occurrence: None)
  Receive Date: 20100922
  Receipt Date: 20100922
  Transmission Date: 20110219
  Serious: Yes (Disabling)
  Sender: FDA-Public Use
  Company Number: None

PATIENT
  Age: 69 Year
  Sex: Female
  Weight: 70 kg

DRUGS (1)
  1. ZACTOS PIOGLITAZONE  LILLY [Suspect]
     Indication: DIABETES MELLITUS
     Dosage: 1 TABLET DAILY PO
     Route: 048

REACTIONS (2)
  - BLADDER CANCER [None]
  - WEIGHT INCREASED [None]
